FAERS Safety Report 15939878 (Version 2)
Quarter: 2019Q1

REPORT INFORMATION
  Report Type: Report from Study
  Country: US (occurrence: US)
  Receive Date: 20190208
  Receipt Date: 20190306
  Transmission Date: 20190417
  Serious: Yes (Life-Threatening, Hospitalization, Other)
  Sender: FDA-Public Use
  Company Number: US-BAYER-2019-006903

PATIENT
  Age: 76 Year
  Sex: Male

DRUGS (13)
  1. LASIX [Concomitant]
     Active Substance: FUROSEMIDE
  2. METOPROLOL. [Concomitant]
     Active Substance: METOPROLOL
  3. JARDIANCE [Concomitant]
     Active Substance: EMPAGLIFLOZIN
  4. SERIVIA [Concomitant]
  5. LYRICA [Concomitant]
     Active Substance: PREGABALIN
  6. LIPITOR [Concomitant]
     Active Substance: ATORVASTATIN CALCIUM
  7. NEXAVAR [Suspect]
     Active Substance: SORAFENIB
     Indication: HEPATOCELLULAR CARCINOMA
     Dosage: 400 MG, BID
     Route: 048
     Dates: start: 20181230
  8. DULERA [Concomitant]
     Active Substance: FORMOTEROL FUMARATE DIHYDRATE\MOMETASONE FUROATE
  9. PROTONIX [OMEPRAZOLE] [Concomitant]
     Active Substance: OMEPRAZOLE
  10. ASA [Concomitant]
     Active Substance: ASPIRIN
  11. INSULIN NPH [INSULIN ISOPHANE BOVINE] [Concomitant]
  12. CALCIUM + VIT D [Concomitant]
     Active Substance: CALCIUM\VITAMIN D
  13. COLACE [Concomitant]
     Active Substance: DOCUSATE SODIUM

REACTIONS (6)
  - Coma [None]
  - Asthenia [None]
  - Ligament sprain [None]
  - Metabolic encephalopathy [None]
  - Joint swelling [None]
  - Myocardial infarction [None]

NARRATIVE: CASE EVENT DATE: 20190114
